FAERS Safety Report 8698761 (Version 2)
Quarter: 2012Q4

REPORT INFORMATION
  Report Type: 
  Country: US (occurrence: US)
  Receive Date: 20120802
  Receipt Date: 20121112
  Transmission Date: 20130627
  Serious: Yes (Hospitalization)
  Sender: FDA-Public Use
  Company Number: US-BAYER-2012-075005

PATIENT
  Age: 34 Year
  Sex: Female
  Weight: 123.6 kg

DRUGS (6)
  1. SAFYRAL [Suspect]
     Dosage: UNK
     Dates: start: 201105
  2. FLONASE [Concomitant]
     Dosage: 2 sprays each nostril once daily.
     Route: 045
  3. NEXIUM [Concomitant]
     Dosage: 40 mg, daily
     Route: 048
  4. LUNESTA [Concomitant]
     Dosage: 3 mg, HS
     Route: 048
  5. SINGULAIR [Concomitant]
     Dosage: 10 mg, daily
     Route: 048
  6. LORTAB 5/500 [Concomitant]
     Indication: PAIN

REACTIONS (4)
  - Deep vein thrombosis [None]
  - Pain [None]
  - Injury [None]
  - Emotional distress [None]
